FAERS Safety Report 5844238-5 (Version None)
Quarter: 2008Q3

REPORT INFORMATION
  Report Type: 
  Country: None (occurrence: None)
  Receive Date: 20080813
  Receipt Date: 20080804
  Transmission Date: 20090109
  Serious: Yes (Hospitalization)
  Sender: FDA-Public Use
  Company Number: DE-PFIZER INC-2008065654

PATIENT
  Sex: Male
  Weight: 80 kg

DRUGS (6)
  1. SU-011,248 [Suspect]
     Indication: METASTATIC RENAL CELL CARCINOMA
     Dosage: DAILY DOSE:37.5MG
  2. TOREM [Concomitant]
  3. METFORMIN HCL [Concomitant]
  4. BUFLOMEDIL HYDROCHLORIDE [Concomitant]
  5. NOVALGIN [Concomitant]
     Route: 048
  6. METOPROLOL SUCCINATE [Concomitant]
     Route: 048

REACTIONS (1)
  - SKIN LESION [None]
